FAERS Safety Report 25893363 (Version 1)
Quarter: 2025Q4

REPORT INFORMATION
  Report Type: Report from Study
  Country: US (occurrence: US)
  Receive Date: 20251008
  Receipt Date: 20251008
  Transmission Date: 20260117
  Serious: Yes (Death, Other)
  Sender: ACADIA PHARMACEUTICALS
  Company Number: US-ACADIA PHARMACEUTICALS INC.-ACA-2025-PIM-010982

PATIENT
  Age: 73 Year
  Sex: Male
  Weight: 68.039 kg

DRUGS (24)
  1. NUPLAZID [Suspect]
     Active Substance: PIMAVANSERIN TARTRATE
     Indication: Hallucination
     Dosage: 34 MILLIGRAM, QD
     Route: 048
     Dates: start: 20191121, end: 20250915
  2. NUPLAZID [Suspect]
     Active Substance: PIMAVANSERIN TARTRATE
     Indication: Parkinson^s disease
  3. NUPLAZID [Suspect]
     Active Substance: PIMAVANSERIN TARTRATE
     Indication: Delusion
  4. PROPRANOLOL [Concomitant]
     Active Substance: PROPRANOLOL HYDROCHLORIDE
  5. QUETIAPINE [Concomitant]
     Active Substance: QUETIAPINE
  6. SERTRALINE [Concomitant]
     Active Substance: SERTRALINE HYDROCHLORIDE
  7. SODIUM CHLORIDE [Concomitant]
     Active Substance: SODIUM CHLORIDE
  8. VENTOLIN HFA [Concomitant]
     Active Substance: ALBUTEROL SULFATE
     Dosage: 90 MCG/INH, 2 PUFF(S), INHALE, EVERY 6 HR
  9. ALBUTEROL [Concomitant]
     Active Substance: ALBUTEROL
     Indication: Wheezing
     Dosage: 2.5 MG/ 3 ML, SOLN, INHALE, EVERY 6 HR, PRN AS NEEDED
  10. BUDESONIDE [Concomitant]
     Active Substance: BUDESONIDE
     Dosage: 0.5 MG/2 ML, SUSP, NEB, BID
  11. CARBIDOPA\LEVODOPA [Concomitant]
     Active Substance: CARBIDOPA\LEVODOPA
     Dosage: 2 TAB(S), TAB, ORAL, QID
     Route: 048
  12. SINEMET CR [Concomitant]
     Active Substance: CARBIDOPA\LEVODOPA
     Dosage: 1 TAB (S), ORAL, NIGHTLY (BEDTIME)
     Route: 048
  13. CLONAZEPAM [Concomitant]
     Active Substance: CLONAZEPAM
     Dosage: 2 MG, 1 TAB(S), TAB, ORAL, QID
     Route: 048
  14. DICLOFENAC [Concomitant]
     Active Substance: DICLOFENAC
     Indication: Back pain
     Dosage: 1 GM, GEL, TOP, QID, PRN
     Route: 061
  15. DEPAKOTE SPRINKLES [Concomitant]
     Active Substance: DIVALPROEX SODIUM
     Dosage: 250 MG = 2 CAP(S), ORAL, BID
     Route: 048
  16. ARICEPT [Concomitant]
     Active Substance: DONEPEZIL HYDROCHLORIDE
     Dosage: 10 MG = 1 TAB(S), TAB, ORAL, NIGHTLY
     Route: 048
  17. DUPIXENT [Concomitant]
     Active Substance: DUPILUMAB
     Dosage: 600 MG, SOLN, SUBCUTANEOUS, ONCE
     Route: 058
  18. DUPIXENT [Concomitant]
     Active Substance: DUPILUMAB
     Dosage: 300 MG, SOLN, SUBCUTANEOUS, EVERY 2 WK, ROTATE INJECTION SITES
     Route: 058
  19. FLUTICASONE [Concomitant]
     Active Substance: FLUTICASONE
     Dosage: 2 SPRAY(S) IN EACH NOSTRIL BID
     Route: 045
  20. HYDROXYZINE HYDROCHLORIDE [Concomitant]
     Active Substance: HYDROXYZINE HYDROCHLORIDE
     Dosage: 1 TAB(S) ORAL BID PRN
     Route: 048
  21. TRESIBA [Concomitant]
     Active Substance: INSULIN DEGLUDEC
     Dosage: (100 UNITS/ML) INJECT 50 UNITS SUBCUTANEOUSLY ONCE DAILY IN THE EVENING
     Route: 058
  22. ALBUTEROL\IPRATROPIUM [Concomitant]
     Active Substance: ALBUTEROL\IPRATROPIUM
     Dosage: 3 ML, SOLN, NEB, QID
  23. LIDOCAINE [Concomitant]
     Active Substance: LIDOCAINE
     Dosage: 1 APP, CREAM, TOP, TID
     Route: 061
  24. NITROGLYCERIN [Concomitant]
     Active Substance: NITROGLYCERIN
     Indication: Chest pain
     Dosage: 0.4 MG/1 TAB(S), TAB, SUBLING, EVERY 5 MINUTES, PRN AS NEEDED FOR CHEST PAIN
     Route: 060

REACTIONS (1)
  - Death [Fatal]

NARRATIVE: CASE EVENT DATE: 20250915
